FAERS Safety Report 9832137 (Version 1)
Quarter: 2014Q1

REPORT INFORMATION
  Report Type: Spontaneous
  Country: US (occurrence: US)
  Receive Date: 20140121
  Receipt Date: 20140121
  Transmission Date: 20141002
  Serious: Yes (Hospitalization)
  Sender: FDA-Public Use
  Company Number: US-BAYER-2014-009691

PATIENT
  Age: 29 Year
  Sex: Female
  Weight: 65.76 kg

DRUGS (4)
  1. YAZ [Suspect]
  2. GIANVI [Suspect]
  3. PERCOCET [Concomitant]
     Indication: PLEURISY
  4. PERCOCET [Concomitant]
     Indication: NAUSEA

REACTIONS (1)
  - Pulmonary embolism [None]
